FAERS Safety Report 8830559 (Version 1)
Quarter: 2012Q4

REPORT INFORMATION
  Report Type: 
  Country: MX (occurrence: MX)
  Receive Date: 20121009
  Receipt Date: 20121009
  Transmission Date: 20130627
  Serious: Yes (Other)
  Sender: FDA-Public Use
  Company Number: MX-SANOFI-AVENTIS-2012SA071726

PATIENT
  Age: 61 Year
  Sex: Male
  Weight: 70 kg

DRUGS (2)
  1. XATRAL [Suspect]
     Indication: BENIGN PROSTATIC HYPERPLASIA
     Route: 048
     Dates: start: 201208
  2. TENORETIC [Concomitant]
     Indication: HYPERTENSION ARTERIAL
     Dosage: atenolol + hydrochlorothiazide = 50 mg + 12.5 mg
     Route: 048
     Dates: start: 2007, end: 201209

REACTIONS (1)
  - Hypertension [Recovering/Resolving]
